FAERS Safety Report 8104748-7 (Version None)
Quarter: 2012Q1

REPORT INFORMATION
  Report Type: 
  Country: None (occurrence: None)
  Receive Date: 20120130
  Receipt Date: 20120120
  Transmission Date: 20120608
  Serious: Yes (Life-Threatening, Hospitalization)
  Sender: FDA-Public Use
  Company Number: PHEH2011US07859

PATIENT
  Age: 54 Year
  Sex: Female

DRUGS (7)
  1. OXYCONTIN [Concomitant]
  2. MEDROL [Concomitant]
  3. HYDROCODONE BITARTRATE [Concomitant]
  4. HYDROCHLOROTHIAZIDE [Concomitant]
  5. PAMELOR [Concomitant]
  6. RECLAST [Suspect]
     Dosage: UNK
     Route: 042
     Dates: start: 20110908
  7. LYRICA [Concomitant]

REACTIONS (16)
  - EYE PAIN [None]
  - JOINT LOCK [None]
  - BONE PAIN [None]
  - FEELING ABNORMAL [None]
  - PAIN IN EXTREMITY [None]
  - PAIN [None]
  - HYPERCALCAEMIA [None]
  - TOOTHACHE [None]
  - PARAESTHESIA [None]
  - ARTHRALGIA [None]
  - INFLAMMATION [None]
  - ABASIA [None]
  - PAIN IN JAW [None]
  - HEADACHE [None]
  - MUSCLE SPASMS [None]
  - PYREXIA [None]
